FAERS Safety Report 7629830 (Version 3)
Quarter: 2020Q4

REPORT INFORMATION
  Report Type: Spontaneous
  Country: US (occurrence: US)
  Receive Date: 20101014
  Receipt Date: 20201031
  Transmission Date: 20210114
  Serious: Yes (Death, Other)
  Sender: FDA-Public Use
  Company Number: US-NAPPMUNDI-USA-2010-0048425

PATIENT
  Age: 25 Year
  Sex: Male

DRUGS (2)
  1. OXYCONTIN [Suspect]
     Active Substance: OXYCODONE HYDROCHLORIDE
     Indication: DRUG ABUSE
     Route: 048
  2. COCAINE [Suspect]
     Active Substance: COCAINE
     Indication: DRUG ABUSE
     Route: 065

REACTIONS (8)
  - Drug dependence [Unknown]
  - Overdose [Fatal]
  - Family stress [Unknown]
  - Sleep disorder [Unknown]
  - Depression [Unknown]
  - Substance abuse [Unknown]
  - Mood swings [Unknown]
  - Anxiety [Unknown]

NARRATIVE: CASE EVENT DATE: 20070615
